FAERS Safety Report 7016891-4 (Version None)
Quarter: 2010Q3

REPORT INFORMATION
  Report Type: 
  Country: None (occurrence: None)
  Receive Date: 20100927
  Receipt Date: 20100916
  Transmission Date: 20110219
  Serious: Yes (Hospitalization, Other)
  Sender: FDA-Public Use
  Company Number: US-AMGEN-QUU438952

PATIENT
  Sex: Male
  Weight: 86 kg

DRUGS (1)
  1. NPLATE [Suspect]
     Indication: IDIOPATHIC THROMBOCYTOPENIC PURPURA
     Dates: start: 20100223, end: 20100803

REACTIONS (6)
  - CONVULSION [None]
  - OEDEMA PERIPHERAL [None]
  - PETECHIAE [None]
  - RASH MACULO-PAPULAR [None]
  - SUPERIOR SAGITTAL SINUS THROMBOSIS [None]
  - THROMBOCYTOPENIA [None]
